FAERS Safety Report 8284557-9 (Version None)
Quarter: 2012Q2

REPORT INFORMATION
  Report Type: 
  Country: None (occurrence: None)
  Receive Date: 20120413
  Receipt Date: 20120130
  Transmission Date: 20120825
  Serious: No
  Sender: FDA-Public Use
  Company Number: US-ASTRAZENECA-2007UW20112

PATIENT
  Age: 72 Year
  Sex: Female
  Weight: 82.6 kg

DRUGS (7)
  1. HYDROCHLOROTHIAZIDE [Concomitant]
     Indication: HYPERTENSION
  2. MONOPRIL [Concomitant]
     Indication: HYPERTENSION
  3. ASPIRIN [Concomitant]
  4. LIPITOR [Concomitant]
  5. ESTROGEN [Concomitant]
  6. PROGESTERONE [Concomitant]
  7. NEXIUM [Suspect]
     Indication: GASTROOESOPHAGEAL REFLUX DISEASE
     Route: 048
     Dates: start: 20070722

REACTIONS (6)
  - DISEASE RECURRENCE [None]
  - DRUG DOSE OMISSION [None]
  - ABDOMINAL DISTENSION [None]
  - ABDOMINAL RIGIDITY [None]
  - ABDOMINAL PAIN UPPER [None]
  - HEADACHE [None]
